FAERS Safety Report 6818367-3 (Version None)
Quarter: 2010Q3

REPORT INFORMATION
  Report Type: 
  Country: None (occurrence: None)
  Receive Date: 20100706
  Receipt Date: 20080107
  Transmission Date: 20110219
  Serious: No
  Sender: FDA-Public Use
  Company Number: US-PFIZER INC-2008002439

PATIENT
  Sex: Female
  Weight: 28.12 kg

DRUGS (1)
  1. AZITHROMYCIN [Suspect]
     Indication: SINUSITIS
     Route: 048
     Dates: start: 20080104, end: 20080105

REACTIONS (2)
  - PRURITUS [None]
  - URTICARIA [None]
